FAERS Safety Report 9682204 (Version 2)
Quarter: 2013Q4

REPORT INFORMATION
  Report Type: Spontaneous
  Country: US (occurrence: US)
  Receive Date: 20131111
  Receipt Date: 20131213
  Transmission Date: 20140711
  Serious: Yes (Other)
  Sender: FDA-Public Use
  Company Number: US-ROCHE-1298261

PATIENT
  Sex: 0

DRUGS (3)
  1. AVASTIN [Suspect]
     Indication: LUNG NEOPLASM MALIGNANT
     Route: 065
  2. TAXOL [Concomitant]
     Indication: LUNG NEOPLASM MALIGNANT
  3. CARBOPLATINUM [Concomitant]
     Indication: LUNG NEOPLASM MALIGNANT

REACTIONS (1)
  - Parkinson^s disease [Unknown]
